FAERS Safety Report 5213141-6 (Version None)
Quarter: 2007Q1

REPORT INFORMATION
  Report Type: 
  Country: None (occurrence: None)
  Receive Date: 20070119
  Receipt Date: 20070108
  Transmission Date: 20070707
  Serious: Yes (Other)
  Sender: FDA-Public Use
  Company Number: PHHO2006AR17847

PATIENT
  Sex: Female

DRUGS (4)
  1. TRILEPTAL [Suspect]
     Route: 048
  2. ANXIOLYTICS [Concomitant]
  3. CLONAZEPAM [Concomitant]
  4. ZYPREXA [Concomitant]

REACTIONS (3)
  - CEREBRAL INFARCTION [None]
  - DEPRESSED MOOD [None]
  - PANIC ATTACK [None]
